FAERS Safety Report 17036802 (Version 1)
Quarter: 2019Q4

REPORT INFORMATION
  Report Type: Report from Study
  Country: SK (occurrence: SK)
  Receive Date: 20191115
  Receipt Date: 20191115
  Transmission Date: 20200122
  Serious: Yes (Other)
  Sender: FDA-Public Use
  Company Number: PHHY2017SK114673

PATIENT
  Age: 32 Year
  Sex: Male

DRUGS (1)
  1. GILENYA [Suspect]
     Active Substance: FINGOLIMOD HYDROCHLORIDE
     Indication: MULTIPLE SCLEROSIS
     Dosage: UNK, QD
     Route: 048
     Dates: start: 20120823

REACTIONS (10)
  - Oropharyngeal pain [Recovered/Resolved]
  - Bronchitis [Recovered/Resolved]
  - Pharyngitis [Recovered/Resolved]
  - Lower respiratory tract infection viral [Unknown]
  - Otitis media [Recovered/Resolved]
  - Oral herpes [Recovered/Resolved]
  - Gamma-glutamyltransferase increased [Unknown]
  - Aspartate aminotransferase increased [Unknown]
  - Alanine aminotransferase increased [Unknown]
  - Lymphocyte count decreased [Unknown]

NARRATIVE: CASE EVENT DATE: 20160611
